FAERS Safety Report 4846426-3 (Version None)
Quarter: 2005Q4

REPORT INFORMATION
  Report Type: 
  Country: None (occurrence: None)
  Receive Date: 20051202
  Receipt Date: 20051117
  Transmission Date: 20060501
  Serious: Yes (Hospitalization, Other)
  Sender: FDA-Public Use
  Company Number: USA-2004-0015730

PATIENT
  Sex: Male

DRUGS (1)
  1. OXYCONTIN [Suspect]
     Indication: PAIN

REACTIONS (25)
  - ABDOMINAL DISTENSION [None]
  - ANXIETY [None]
  - BACK PAIN [None]
  - BENIGN LUNG NEOPLASM [None]
  - CONDITION AGGRAVATED [None]
  - CONSTIPATION [None]
  - DELUSIONAL DISORDER, UNSPECIFIED TYPE [None]
  - DEPRESSION [None]
  - DIVERTICULITIS [None]
  - DRUG DEPENDENCE [None]
  - DRUG TOLERANCE [None]
  - DRUG WITHDRAWAL SYNDROME [None]
  - ERECTILE DYSFUNCTION [None]
  - FATIGUE [None]
  - INADEQUATE ANALGESIA [None]
  - MENTAL DISORDER [None]
  - NASAL DISCOMFORT [None]
  - NASAL DRYNESS [None]
  - OBSESSIVE-COMPULSIVE DISORDER [None]
  - PAIN [None]
  - PARANOIA [None]
  - PROCEDURAL PAIN [None]
  - SCIATICA [None]
  - TENSION HEADACHE [None]
  - WEIGHT INCREASED [None]
